FAERS Safety Report 6024462-1 (Version None)
Quarter: 2008Q4

REPORT INFORMATION
  Report Type: 
  Country: None (occurrence: None)
  Receive Date: 20081231
  Receipt Date: 20081218
  Transmission Date: 20090506
  Serious: Yes (Other)
  Sender: FDA-Public Use
  Company Number: PHHY2008CA32644

PATIENT
  Sex: Male

DRUGS (6)
  1. DIOVAN HCT [Suspect]
     Dosage: 160/12.5 MG 1 DF DAILY
     Route: 048
  2. DIOVAN [Suspect]
     Dosage: 80 MG 1 TABLET DAILY
     Route: 048
  3. NEXIUM [Concomitant]
  4. EFFEXOR [Concomitant]
  5. LIPITOR [Concomitant]
  6. PREDNISONE [Concomitant]

REACTIONS (1)
  - DIABETES MELLITUS [None]
